FAERS Safety Report 9627198 (Version 2)
Quarter: 2013Q4

REPORT INFORMATION
  Report Type: Spontaneous
  Country: US (occurrence: US)
  Receive Date: 20131016
  Receipt Date: 20131031
  Transmission Date: 20140711
  Serious: Yes (Hospitalization)
  Sender: FDA-Public Use
  Company Number: US-ALEXION PHARMACEUTICALS INC.-A201302599

PATIENT
  Age: 61 Year
  Sex: Female
  Weight: 78.01 kg

DRUGS (2)
  1. SOLIRIS 300MG [Suspect]
     Indication: PAROXYSMAL NOCTURNAL HAEMOGLOBINURIA
     Dosage: UNK, QW X 4 WEEKS
     Route: 042
     Dates: start: 20130710
  2. SOLIRIS 300MG [Suspect]
     Dosage: UNK, Q2W
     Route: 042
     Dates: start: 20130807

REACTIONS (1)
  - Aplastic anaemia [Recovered/Resolved]
